FAERS Safety Report 16238888 (Version 1)
Quarter: 2019Q2

REPORT INFORMATION
  Report Type: Spontaneous
  Country: DE (occurrence: DE)
  Receive Date: 20190425
  Receipt Date: 20190425
  Transmission Date: 20190711
  Serious: Yes (Hospitalization, Other)
  Sender: FDA-Public Use
  Company Number: DE-AMGEN-DEUSP2019061355

PATIENT
  Sex: Female
  Weight: 1.28 kg

DRUGS (10)
  1. XGEVA [Suspect]
     Active Substance: DENOSUMAB
     Indication: EXPOSURE DURING PREGNANCY
     Dosage: UNK, Q4WK
     Route: 064
     Dates: start: 20170726, end: 20171115
  2. SELENASE [Concomitant]
     Dosage: 1 UNK, QD
     Route: 064
     Dates: start: 201612, end: 201712
  3. TAMOXIFEN [Suspect]
     Active Substance: TAMOXIFEN
     Indication: EXPOSURE DURING PREGNANCY
     Dosage: UNK (2 MONTHS)
     Route: 064
  4. VITAMIN D3 [Concomitant]
     Active Substance: CHOLECALCIFEROL
     Dosage: UNK UNK, 1X/DAY
     Route: 064
     Dates: start: 201612, end: 201712
  5. MAGNESIUM [Concomitant]
     Active Substance: MAGNESIUM
     Dosage: 1 UNK, QD
     Route: 064
     Dates: start: 201710, end: 201712
  6. FASLODEX [Suspect]
     Active Substance: FULVESTRANT
     Indication: EXPOSURE DURING PREGNANCY
     Dosage: UNK
     Route: 064
     Dates: start: 20170807, end: 20171214
  7. VITAMIN C ACID [Concomitant]
     Active Substance: ASCORBIC ACID
     Dosage: UNK UNK, 1X/DAY
     Route: 064
     Dates: start: 201612, end: 201712
  8. IBRANCE [Suspect]
     Active Substance: PALBOCICLIB
     Indication: EXPOSURE DURING PREGNANCY
     Dosage: UNK
     Route: 064
     Dates: start: 20170807, end: 20171214
  9. EQUINOVO [Concomitant]
     Dosage: UNK UNK, 1X/DAY
     Route: 064
     Dates: start: 201612, end: 201712
  10. ZOLADEX [Suspect]
     Active Substance: GOSERELIN ACETATE
     Indication: EXPOSURE DURING PREGNANCY
     Dosage: UNK
     Route: 064
     Dates: start: 20170719, end: 20171115

REACTIONS (2)
  - Foetal exposure during pregnancy [Unknown]
  - Nephrocalcinosis [Not Recovered/Not Resolved]
